FAERS Safety Report 6463633-7 (Version None)
Quarter: 2009Q4

REPORT INFORMATION
  Report Type: 
  Country: None (occurrence: None)
  Receive Date: 20091201
  Receipt Date: 20091120
  Transmission Date: 20100525
  Serious: Yes (Other)
  Sender: FDA-Public Use
  Company Number: FR-JNJFOC-20091106908

PATIENT
  Age: 29 Year
  Sex: Female

DRUGS (2)
  1. REMICADE [Suspect]
     Dosage: 6TH TREATMENT
     Route: 042
  2. REMICADE [Suspect]
     Indication: PSORIASIS
     Dosage: TREATMENT 1-5
     Route: 042

REACTIONS (1)
  - ASTHENIA [None]
